FAERS Safety Report 6267384-3 (Version None)
Quarter: 2009Q3

REPORT INFORMATION
  Report Type: 
  Country: None (occurrence: None)
  Receive Date: 20090714
  Receipt Date: 20090707
  Transmission Date: 20100115
  Serious: Yes (Hospitalization)
  Sender: FDA-Public Use
  Company Number: US-ELI_LILLY_AND_COMPANY-US200906002207

PATIENT
  Sex: Male
  Weight: 107.94 kg

DRUGS (5)
  1. BYETTA [Suspect]
     Indication: TYPE 2 DIABETES MELLITUS
     Dosage: 10 UG, 2/D
     Route: 058
     Dates: start: 20050908, end: 20090517
  2. GLIMEPIRIDE [Concomitant]
     Indication: DIABETES MELLITUS
     Dosage: 8 MG, DAILY (1/D)
  3. METFORMIN HCL [Concomitant]
     Indication: DIABETES MELLITUS
     Dosage: 1000 MG, UNK
  4. NEURONTIN [Concomitant]
     Dosage: 300 MG, 3/D
     Dates: start: 20080101
  5. OMACOR [Concomitant]
     Indication: LIPIDS
     Dosage: 2 G, UNK

REACTIONS (3)
  - GALLBLADDER ENLARGEMENT [None]
  - PANCREATITIS ACUTE [None]
  - WEIGHT DECREASED [None]
